FAERS Safety Report 8217340-0 (Version None)
Quarter: 2012Q1

REPORT INFORMATION
  Report Type: 
  Country: None (occurrence: None)
  Receive Date: 20120313
  Receipt Date: 20120301
  Transmission Date: 20120608
  Serious: Yes (Death)
  Sender: FDA-Public Use
  Company Number: 1217333

PATIENT

DRUGS (6)
  1. THERAPEUTIC RADIOPHARMACEUTICALS [Suspect]
     Indication: BREAST CANCER
  2. TRASTUZUMAB [Suspect]
     Indication: BREAST CANCER
  3. ANASTROZOLE [Suspect]
     Indication: BREAST CANCER
  4. CYCLOPHOSPHAMIDE [Suspect]
     Indication: BREAST CANCER
     Dosage: 600 MG/M^2, EVERY 14 DAYS,
  5. PACLITAXEL [Suspect]
     Indication: BREAST CANCER
     Dosage: 175 MG/M^2, EVERY 14 DAYS,
  6. ADRIAMYCIN PFS [Suspect]
     Indication: BREAST CANCER
     Dosage: 60 MG/M^2, EVERY 14 DAYS,

REACTIONS (2)
  - ACUTE MYELOID LEUKAEMIA [None]
  - TREATMENT RELATED SECONDARY MALIGNANCY [None]
